FAERS Safety Report 16885942 (Version 1)
Quarter: 2019Q4

REPORT INFORMATION
  Report Type: Not Available
  Country: GB (occurrence: GB)
  Receive Date: 20191004
  Receipt Date: 20191004
  Transmission Date: 20200122
  Serious: Yes (Other)
  Sender: FDA-Public Use
  Company Number: GB-SYNTHON BV-IN51PV19_49952

PATIENT
  Age: 55 Year
  Sex: Male
  Weight: 86.63 kg

DRUGS (2)
  1. PAMSVAX XL [Suspect]
     Active Substance: TAMSULOSIN HYDROCHLORIDE
     Indication: NOCTURIA
     Dosage: 400 MILLIGRAM
     Route: 048
     Dates: start: 20190801, end: 20190802
  2. LANSOPRAZOLE. [Concomitant]
     Active Substance: LANSOPRAZOLE
     Indication: DYSPEPSIA
     Dosage: 15 MILLIGRAM

REACTIONS (4)
  - Headache [Recovering/Resolving]
  - Facial pain [Recovering/Resolving]
  - Toothache [Recovering/Resolving]
  - Gingival pain [Recovering/Resolving]

NARRATIVE: CASE EVENT DATE: 20190801
